FAERS Safety Report 6869737-9 (Version None)
Quarter: 2010Q3

REPORT INFORMATION
  Report Type: 
  Country: None (occurrence: None)
  Receive Date: 20100722
  Receipt Date: 20081006
  Transmission Date: 20110219
  Serious: No
  Sender: FDA-Public Use
  Company Number: US-PFIZER INC-2008070090

PATIENT
  Sex: Male
  Weight: 70.31 kg

DRUGS (3)
  1. CHANTIX [Suspect]
     Indication: SMOKING CESSATION THERAPY
     Route: 048
     Dates: start: 20080801
  2. ACETYLSALICYLIC ACID [Concomitant]
  3. VIAGRA [Concomitant]

REACTIONS (3)
  - ANXIETY [None]
  - DEPRESSED MOOD [None]
  - PSYCHIATRIC SYMPTOM [None]
